FAERS Safety Report 23943562 (Version 2)
Quarter: 2024Q2

REPORT INFORMATION
  Report Type: Report from Study
  Country: GR (occurrence: GR)
  Receive Date: 20240606
  Receipt Date: 20240611
  Transmission Date: 20240716
  Serious: Yes (Hospitalization, Other)
  Sender: FDA-Public Use
  Company Number: GR-ABBVIE-5782519

PATIENT
  Age: 78 Year
  Sex: Female
  Weight: 65 kg

DRUGS (13)
  1. CARBIDOPA\LEVODOPA [Suspect]
     Active Substance: CARBIDOPA\LEVODOPA
     Indication: Parkinson^s disease
     Dosage: MORNING DOSE: 8.5ML; CONTINUOUS RATE: 1.2ML/H; EXTRA DOSE: 1.0ML
     Route: 050
  2. CARBIDOPA\LEVODOPA [Suspect]
     Active Substance: CARBIDOPA\LEVODOPA
     Dosage: MORNING DOSE: 8.5ML; CONTINUOUS RATE: 1.4ML/H; EXTRA DOSE: 1.0ML?LAST ADMIN DATE: MAY 2024
     Route: 050
     Dates: start: 20240524
  3. CARBIDOPA\LEVODOPA [Suspect]
     Active Substance: CARBIDOPA\LEVODOPA
     Dosage: MORNING DOSE: 8.5ML; CONTINUOUS RATE: 1.2ML/H; EXTRA DOSE: 1.0ML
     Route: 050
     Dates: start: 202405, end: 202405
  4. CARBIDOPA\LEVODOPA [Suspect]
     Active Substance: CARBIDOPA\LEVODOPA
     Dosage: MORNING DOSE: 8.5ML; CONTINUOUS RATE: 1.2ML/H; EXTRA DOSE: 1.0ML
     Route: 050
     Dates: end: 20240530
  5. XADAGO [Concomitant]
     Active Substance: SAFINAMIDE MESYLATE
     Indication: Parkinson^s disease
     Route: 048
  6. CLOZAPINE [Concomitant]
     Active Substance: CLOZAPINE
     Indication: Hallucination
     Dosage: UNIT DOSE: 12.5MG, FORM STRENGTH: 25 MG, FREQUENCY 1X1 DAYS AT NIGHT
     Route: 048
  7. PRAMIPEXOLE [Concomitant]
     Active Substance: PRAMIPEXOLE\PRAMIPEXOLE DIHYDROCHLORIDE
     Indication: Parkinson^s disease
     Dosage: UNIT DOSE: ONE OF UNSPECIFIED FORM STRENGTH
     Route: 048
  8. PRAMIPEXOLE [Concomitant]
     Active Substance: PRAMIPEXOLE\PRAMIPEXOLE DIHYDROCHLORIDE
     Indication: Parkinson^s disease
     Dosage: UNIT DOSE: HALF OF UNSPECIFIED FORM STRENGTH
     Route: 048
  9. BROMAZEPAM [Concomitant]
     Active Substance: BROMAZEPAM
     Indication: Abnormal dreams
     Dosage: UNIT DOSE: 1.5 MG?FORM STRENGTH: 3  MG
     Route: 048
  10. FLECAINIDE ACETATE [Concomitant]
     Active Substance: FLECAINIDE ACETATE
     Indication: Product used for unknown indication
     Route: 048
  11. BISOPROLOL FUMARATE [Concomitant]
     Active Substance: BISOPROLOL FUMARATE
     Indication: Product used for unknown indication
     Dosage: UNIT DOSE: 2.5 MG?FORM STRENGTH: 5 MG
     Route: 048
  12. EFFEXOR [Concomitant]
     Active Substance: VENLAFAXINE HYDROCHLORIDE
     Indication: Depression
     Route: 048
  13. CHOLECALCIFEROL [Concomitant]
     Active Substance: CHOLECALCIFEROL
     Indication: Product used for unknown indication
     Dosage: FREQUENCY TEXT: 1 TO 2 TIMES PER MONTH
     Route: 048

REACTIONS (11)
  - Gastrostomy tube site complication [Recovered/Resolved]
  - Hallucination, visual [Unknown]
  - Oxygen saturation decreased [Not Recovered/Not Resolved]
  - SARS-CoV-2 test positive [Unknown]
  - Lethargy [Unknown]
  - Hyperkinesia [Unknown]
  - Product quality issue [Unknown]
  - Abdominal pain [Unknown]
  - Procedural complication [Recovered/Resolved]
  - Headache [Not Recovered/Not Resolved]
  - Pyrexia [Not Recovered/Not Resolved]

NARRATIVE: CASE EVENT DATE: 20240501
